FAERS Safety Report 10395370 (Version 2)
Quarter: 2014Q3

REPORT INFORMATION
  Report Type: Spontaneous
  Country: US (occurrence: US)
  Receive Date: 20140820
  Receipt Date: 20140924
  Transmission Date: 20150326
  Serious: No
  Sender: FDA-Public Use
  Company Number: US-PFIZER INC-2014230183

PATIENT
  Age: 46 Year
  Sex: Female

DRUGS (1)
  1. ZIPRASIDONE HCL [Suspect]
     Active Substance: ZIPRASIDONE HYDROCHLORIDE
     Dosage: UNK

REACTIONS (4)
  - Mood swings [Unknown]
  - Drug ineffective [Unknown]
  - Weight increased [Unknown]
  - Anger [Unknown]
